FAERS Safety Report 17168788 (Version 1)
Quarter: 2019Q4

REPORT INFORMATION
  Report Type: Spontaneous
  Country: US (occurrence: US)
  Receive Date: 20191125
  Receipt Date: 20191125
  Transmission Date: 20200122
  Serious: No
  Sender: FDA-Public Use
  Company Number: None

PATIENT
  Age: 63 Year
  Sex: Female

DRUGS (1)
  1. NUCALA [Suspect]
     Active Substance: MEPOLIZUMAB
     Indication: ASTHMA
     Dosage: OTHER
     Route: 058
     Dates: start: 201703

REACTIONS (2)
  - Product dose omission [None]
  - Cough [None]

NARRATIVE: CASE EVENT DATE: 20191122
